FAERS Safety Report 9824696 (Version 3)
Quarter: 2014Q1

REPORT INFORMATION
  Report Type: Report from Study
  Country: JP (occurrence: JP)
  Receive Date: 20140117
  Receipt Date: 20140318
  Transmission Date: 20141002
  Serious: Yes (Hospitalization)
  Sender: FDA-Public Use
  Company Number: JP-AMGEN-JPNCT2014002718

PATIENT
  Age: 81 Year
  Sex: Female
  Weight: 40.5 kg

DRUGS (6)
  1. DENOSUMAB [Suspect]
     Indication: OSTEOPOROSIS
     Dosage: 60 MG, UNK
     Route: 058
     Dates: start: 20130906
  2. FOSAMAC [Concomitant]
     Dosage: 35 MG, QD
     Route: 048
     Dates: start: 20051202, end: 20130724
  3. CALFINA [Concomitant]
     Dosage: 0.5 MUG, QD
     Route: 048
     Dates: start: 20051202, end: 20130724
  4. BLOPRESS [Concomitant]
     Dosage: 4 MG, QD
     Route: 048
  5. BUFFERIN                           /00002701/ [Concomitant]
     Dosage: QD81 MG, QD
     Route: 048
  6. MEMARY [Concomitant]
     Dosage: 5 MG, QD
     Route: 048

REACTIONS (1)
  - Osteoporotic fracture [Recovering/Resolving]
